FAERS Safety Report 9383448 (Version 1)
Quarter: 2013Q3

REPORT INFORMATION
  Report Type: Spontaneous
  Country: PL (occurrence: PL)
  Receive Date: 20130704
  Receipt Date: 20130704
  Transmission Date: 20140515
  Serious: Yes (Disabling, Other)
  Sender: FDA-Public Use
  Company Number: PL-ROCHE-1244021

PATIENT
  Age: 60 Year
  Sex: Female
  Weight: 45 kg

DRUGS (5)
  1. BEVACIZUMAB [Suspect]
     Indication: COLORECTAL CANCER
     Route: 042
     Dates: start: 20130205, end: 20130215
  2. OXALIPLATIN [Concomitant]
     Indication: COLORECTAL CANCER
     Route: 042
     Dates: start: 20130205
  3. 5-FLUOROURACIL [Concomitant]
     Indication: COLORECTAL CANCER
     Route: 040
     Dates: start: 20130205
  4. 5-FLUOROURACIL [Concomitant]
     Route: 065
     Dates: start: 20130205
  5. LEUCOVORIN [Concomitant]
     Indication: COLORECTAL CANCER
     Route: 065
     Dates: start: 20130205

REACTIONS (3)
  - Gait disturbance [Recovered/Resolved]
  - Nervous system disorder [Unknown]
  - Asthenia [Unknown]
